FAERS Safety Report 16105706 (Version 1)
Quarter: 2019Q1

REPORT INFORMATION
  Report Type: Spontaneous
  Country: US (occurrence: US)
  Receive Date: 20190322
  Receipt Date: 20190322
  Transmission Date: 20190418
  Serious: Yes (Other)
  Sender: FDA-Public Use
  Company Number: US-ASTRAZENECA-2019SE43402

PATIENT
  Sex: Male
  Weight: 32.7 kg

DRUGS (1)
  1. CRESTOR [Suspect]
     Active Substance: ROSUVASTATIN CALCIUM
     Indication: CORONARY ARTERY DISEASE
     Route: 048
     Dates: start: 2007

REACTIONS (7)
  - Cardiac failure congestive [Unknown]
  - Diabetes mellitus [Unknown]
  - Hypertension [Unknown]
  - Off label use [Unknown]
  - Product use in unapproved indication [Unknown]
  - Hypothyroidism [Unknown]
  - Tonsil cancer [Unknown]
